FAERS Safety Report 20682765 (Version 1)
Quarter: 2022Q2

REPORT INFORMATION
  Report Type: Other
  Country: ES (occurrence: None)
  Receive Date: 20220407
  Receipt Date: 20220407
  Transmission Date: 20220720
  Serious: Yes (Other)
  Sender: FDA-Public Use
  Company Number: ES-Umedica-000221

PATIENT
  Age: 87 Year
  Sex: Male

DRUGS (2)
  1. CHLORTHALIDONE [Suspect]
     Active Substance: CHLORTHALIDONE
     Indication: Hypertension
  2. ACETAZOLAMIDE [Concomitant]
     Active Substance: ACETAZOLAMIDE
     Indication: Product used for unknown indication
     Dosage: SINGLE DOSE OF ACETAZOLAMIDE(250 MG)

REACTIONS (2)
  - Choroidal detachment [Recovered/Resolved]
  - Iridocyclitis [Recovered/Resolved]
